FAERS Safety Report 18014291 (Version 1)
Quarter: 2020Q3

REPORT INFORMATION
  Report Type: Spontaneous
  Country: DE (occurrence: DE)
  Receive Date: 20200713
  Receipt Date: 20200713
  Transmission Date: 20201103
  Serious: Yes (Hospitalization)
  Sender: FDA-Public Use
  Company Number: DE-TEVA-2020-DE-1798814

PATIENT
  Age: 84 Year
  Sex: Female
  Weight: 60 kg

DRUGS (10)
  1. OPIPRAMOL [Suspect]
     Active Substance: OPIPRAMOL
     Dosage: 50 MILLIGRAM DAILY; 1?0?0?0
     Route: 048
  2. RIVAROXABAN [Concomitant]
     Active Substance: RIVAROXABAN
     Dosage: 30 MILLIGRAM DAILY; 1?0?1?0
     Route: 048
  3. METAMIZOL [Concomitant]
     Active Substance: METAMIZOLE SODIUM
     Dosage: 2000 MILLIGRAM DAILY; 1?1?1?1
     Route: 048
  4. OXYCODON [Suspect]
     Active Substance: OXYCODONE
     Dosage: 20 MILLIGRAM DAILY; 1?0?1?0
     Route: 048
  5. KALINOR?RETARD P 600 MG HARTKAPSELN, RETARDIERT [Concomitant]
     Dosage: 600 MG, 1?1?1?0, UNIT DOSE: 1800 MG,  FORM OF ADMIN. TEXT :  HARD CAPSULES, DELAYED RELEASE
     Route: 048
  6. METOCLOPRAMID [Suspect]
     Active Substance: METOCLOPRAMIDE
     Dosage: 20 MILLIGRAM DAILY;  1?0?1?0,
     Route: 048
  7. AMLODIPIN [Concomitant]
     Active Substance: AMLODIPINE BESYLATE
     Dosage: 10 MILLIGRAM DAILY;  1?0?1?0
     Route: 048
  8. DEXAMETHASON [Concomitant]
     Active Substance: DEXAMETHASONE
     Dosage: 4 MILLIGRAM DAILY;  1?0?0?0,
     Route: 048
  9. CANDESARTAN. [Concomitant]
     Active Substance: CANDESARTAN
     Dosage: 16 MG, 0.5?0?0.5?0, UNIT DOSE: 8 MG
     Route: 048
  10. PANTOPRAZOL [Concomitant]
     Active Substance: PANTOPRAZOLE SODIUM
     Dosage: 40 MILLIGRAM DAILY;  1?0?0?0
     Route: 048

REACTIONS (6)
  - General physical health deterioration [Unknown]
  - Dehydration [Unknown]
  - Omphalitis [Unknown]
  - Pyrexia [Unknown]
  - Umbilical discharge [Unknown]
  - Confusional state [Unknown]
